FAERS Safety Report 10163338 (Version 2)
Quarter: 2014Q4

REPORT INFORMATION
  Report Type: Spontaneous
  Country: US (occurrence: US)
  Receive Date: 20140509
  Receipt Date: 20141001
  Transmission Date: 20150528
  Serious: Yes (Other)
  Sender: FDA-Public Use
  Company Number: US-BAYER-2014-067660

PATIENT
  Age: 38 Year
  Sex: Female
  Weight: 58.96 kg

DRUGS (4)
  1. OCELLA [Suspect]
     Active Substance: DROSPIRENONE\ETHINYL ESTRADIOL
     Dosage: UNK
     Route: 048
     Dates: start: 20120225, end: 20120915
  2. YASMIN [Suspect]
     Active Substance: DROSPIRENONE\ETHINYL ESTRADIOL
     Dosage: UNK
     Route: 048
     Dates: start: 20080110, end: 20120225
  3. PRILOSEC [Concomitant]
     Active Substance: OMEPRAZOLE MAGNESIUM
  4. PARAGARD T380A [Concomitant]
     Active Substance: COPPER

REACTIONS (8)
  - Pulmonary embolism [None]
  - Pain [None]
  - Nervousness [None]
  - Cholecystitis [None]
  - Injury [None]
  - Emotional distress [None]
  - Depression [None]
  - Fear of death [None]

NARRATIVE: CASE EVENT DATE: 20120915
